FAERS Safety Report 9173178 (Version 1)
Quarter: 2013Q1

REPORT INFORMATION
  Report Type: Spontaneous
  Country: JP (occurrence: JP)
  Receive Date: 20130320
  Receipt Date: 20130320
  Transmission Date: 20140127
  Serious: No
  Sender: FDA-Public Use
  Company Number: JP-JNJFOC-20130307164

PATIENT
  Age: 9 Decade
  Sex: 0

DRUGS (2)
  1. DUROTEP MT [Suspect]
     Indication: CANCER PAIN
     Dosage: HALF PATCH OF 12.5 UG/HR
     Route: 062
     Dates: start: 20130308
  2. MORPHINE HYDROCHLORIDE [Concomitant]
     Indication: CANCER PAIN
     Route: 065
     Dates: start: 20130306

REACTIONS (1)
  - Wrong technique in drug usage process [Unknown]
